FAERS Safety Report 17328521 (Version 1)
Quarter: 2020Q1

REPORT INFORMATION
  Report Type: Spontaneous
  Country: US (occurrence: US)
  Receive Date: 20200127
  Receipt Date: 20200127
  Transmission Date: 20200409
  Serious: Yes (Other)
  Sender: FDA-Public Use
  Company Number: US-FRESENIUS KABI-FK202000807

PATIENT
  Age: 67 Year
  Sex: Male

DRUGS (4)
  1. RIFAMPICIN [Concomitant]
     Active Substance: RIFAMPIN
     Route: 048
  2. RIFAMPICIN [Concomitant]
     Active Substance: RIFAMPIN
     Indication: ACUTE ENDOCARDITIS
     Dosage: UNKNOWN
     Route: 065
  3. GENTAMICIN (MANUFACTURER UNKNOWN) [Suspect]
     Active Substance: GENTAMICIN
     Indication: ACUTE ENDOCARDITIS
     Dosage: UNKNOWN
     Route: 065
  4. VANCOMYCIN (MANUFACTURER UNKNOWN) [Suspect]
     Active Substance: VANCOMYCIN
     Indication: ACUTE ENDOCARDITIS
     Dosage: UNKNOWN
     Route: 065

REACTIONS (2)
  - Renal tubular necrosis [Unknown]
  - Acute kidney injury [Unknown]
